FAERS Safety Report 15470871 (Version 6)
Quarter: 2020Q2

REPORT INFORMATION
  Report Type: Report from Study
  Country: None (occurrence: AU)
  Receive Date: 20181005
  Receipt Date: 20200529
  Transmission Date: 20200713
  Serious: Yes (Hospitalization, Other)
  Sender: FDA-Public Use
  Company Number: AU-ABBVIE-18K-008-2403555-00

PATIENT
  Sex: Male

DRUGS (13)
  1. HUMIRA [Suspect]
     Active Substance: ADALIMUMAB
     Route: 058
  2. HUMIRA [Suspect]
     Active Substance: ADALIMUMAB
     Route: 058
     Dates: end: 2020
  3. HUMIRA [Suspect]
     Active Substance: ADALIMUMAB
     Route: 058
  4. APIXABAN [Concomitant]
     Active Substance: APIXABAN
     Indication: PRODUCT USED FOR UNKNOWN INDICATION
     Dates: start: 201808
  5. ASPRIN [Concomitant]
     Active Substance: ASPIRIN
     Indication: PRODUCT USED FOR UNKNOWN INDICATION
     Dates: start: 201808
  6. HUMIRA [Suspect]
     Active Substance: ADALIMUMAB
     Route: 058
  7. WARFARIN [Suspect]
     Active Substance: WARFARIN
     Indication: PRODUCT USED FOR UNKNOWN INDICATION
     Route: 065
     Dates: start: 201712, end: 201804
  8. CLEXANE [Concomitant]
     Active Substance: ENOXAPARIN SODIUM
     Indication: PRODUCT USED FOR UNKNOWN INDICATION
     Route: 065
     Dates: start: 201708, end: 201712
  9. CLEXANE [Concomitant]
     Active Substance: ENOXAPARIN SODIUM
     Route: 065
     Dates: start: 201804, end: 2018
  10. HUMIRA [Suspect]
     Active Substance: ADALIMUMAB
     Indication: COLITIS ULCERATIVE
     Route: 058
     Dates: start: 2017
  11. PREDNISOLONE. [Concomitant]
     Active Substance: PREDNISOLONE
     Indication: PRODUCT USED FOR UNKNOWN INDICATION
  12. HUMIRA [Suspect]
     Active Substance: ADALIMUMAB
     Route: 058
  13. RIVAROXABAN [Concomitant]
     Active Substance: RIVAROXABAN
     Indication: PRODUCT USED FOR UNKNOWN INDICATION
     Route: 065
     Dates: start: 201804, end: 201808

REACTIONS (11)
  - Peripheral artery thrombosis [Unknown]
  - International normalised ratio abnormal [Unknown]
  - Thrombosis [Unknown]
  - Rectal haemorrhage [Recovering/Resolving]
  - Colitis ulcerative [Not Recovered/Not Resolved]
  - Deep vein thrombosis [Unknown]
  - Therapeutic product effect incomplete [Not Recovered/Not Resolved]
  - Diarrhoea [Not Recovered/Not Resolved]
  - Frequent bowel movements [Recovering/Resolving]
  - Peripheral ischaemia [Recovering/Resolving]
  - Gastrointestinal pain [Recovering/Resolving]

NARRATIVE: CASE EVENT DATE: 2017
